FAERS Safety Report 7293143-9 (Version None)
Quarter: 2011Q1

REPORT INFORMATION
  Report Type: 
  Country: None (occurrence: None)
  Receive Date: 20110215
  Receipt Date: 20110131
  Transmission Date: 20110831
  Serious: Yes (Hospitalization, Other)
  Sender: FDA-Public Use
  Company Number: US-ROCHE-748470

PATIENT
  Sex: Female
  Weight: 50.8 kg

DRUGS (3)
  1. ACCUTANE [Suspect]
     Route: 065
     Dates: start: 19990802, end: 20000102
  2. ACCUTANE [Suspect]
     Route: 065
     Dates: start: 20000303, end: 20000803
  3. ACCUTANE [Suspect]
     Route: 065
     Dates: start: 19980109, end: 19980612

REACTIONS (6)
  - LIP DRY [None]
  - DEPRESSION [None]
  - SUICIDAL IDEATION [None]
  - DRY SKIN [None]
  - COLITIS ULCERATIVE [None]
  - INFLAMMATORY BOWEL DISEASE [None]
